FAERS Safety Report 14029051 (Version 4)
Quarter: 2020Q4

REPORT INFORMATION
  Report Type: Spontaneous
  Country: US (occurrence: US)
  Receive Date: 20170930
  Receipt Date: 20201008
  Transmission Date: 20210113
  Serious: Yes (Disabling)
  Sender: FDA-Public Use
  Company Number: US-SA-2017SA082951

PATIENT

DRUGS (1)
  1. AUBAGIO [Suspect]
     Active Substance: TERIFLUNOMIDE
     Indication: MULTIPLE SCLEROSIS
     Dosage: 14 MG,QD
     Route: 048
     Dates: start: 20170405

REACTIONS (6)
  - Alopecia [Unknown]
  - Limb discomfort [Unknown]
  - Fatigue [Unknown]
  - Oral herpes [Unknown]
  - Loss of personal independence in daily activities [Unknown]
  - Balance disorder [Unknown]

NARRATIVE: CASE EVENT DATE: 201707
